FAERS Safety Report 6466527-6 (Version None)
Quarter: 2009Q4

REPORT INFORMATION
  Report Type: 
  Country: None (occurrence: None)
  Receive Date: 20091202
  Receipt Date: 20091119
  Transmission Date: 20100525
  Serious: Yes (Other)
  Sender: FDA-Public Use
  Company Number: US-SANOFI-AVENTIS-2009SA003904

PATIENT

DRUGS (3)
  1. MULTAQ [Suspect]
     Route: 048
  2. DIGOXIN [Suspect]
     Route: 065
  3. COUMADIN [Suspect]
     Route: 065

REACTIONS (1)
  - CARDIAC TAMPONADE [None]
